FAERS Safety Report 18817259 (Version 1)
Quarter: 2021Q1

REPORT INFORMATION
  Report Type: Report from Study
  Country: CN (occurrence: CN)
  Receive Date: 20210201
  Receipt Date: 20210201
  Transmission Date: 20210419
  Serious: No
  Sender: FDA-Public Use
  Company Number: CN-KARYOPHARM-2020KPT001551

PATIENT
  Age: 60 Year
  Sex: Female

DRUGS (3)
  1. VELCADE [Concomitant]
     Active Substance: BORTEZOMIB
     Indication: PLASMA CELL MYELOMA
  2. DEXAMETHASONE. [Concomitant]
     Active Substance: DEXAMETHASONE
     Indication: PLASMA CELL MYELOMA
  3. SELINEXOR [Suspect]
     Active Substance: SELINEXOR
     Indication: PLASMA CELL MYELOMA
     Dosage: 60 MG, WEEKLY
     Route: 048
     Dates: start: 20201111, end: 20201120

REACTIONS (7)
  - Nausea [Not Recovered/Not Resolved]
  - Hyponatraemia [Unknown]
  - Blood creatinine increased [Not Recovered/Not Resolved]
  - Hyperkalaemia [Recovered/Resolved]
  - Weight decreased [Unknown]
  - Thrombocytopenia [Unknown]
  - Decreased appetite [Unknown]

NARRATIVE: CASE EVENT DATE: 20201114
